FAERS Safety Report 21172467 (Version 2)
Quarter: 2022Q3

REPORT INFORMATION
  Report Type: Spontaneous
  Country: US (occurrence: US)
  Receive Date: 20220804
  Receipt Date: 20220902
  Transmission Date: 20221026
  Serious: Yes (Hospitalization, Other)
  Sender: FDA-Public Use
  Company Number: US-UCBSA-2022042941

PATIENT
  Age: 56 Year
  Sex: Male
  Weight: 120 kg

DRUGS (1)
  1. CIMZIA [Suspect]
     Active Substance: CERTOLIZUMAB PEGOL
     Indication: Ankylosing spondylitis
     Dosage: 200 MILLIGRAM, EVERY 12 DAYS
     Route: 058
     Dates: start: 2019

REACTIONS (4)
  - Pancreatic neoplasm [Recovering/Resolving]
  - Neurofibrosarcoma [Recovering/Resolving]
  - Pancreaticoduodenectomy [Recovering/Resolving]
  - Inappropriate schedule of product administration [Unknown]

NARRATIVE: CASE EVENT DATE: 20211002
